FAERS Safety Report 9407560 (Version 1)
Quarter: 2013Q3

REPORT INFORMATION
  Report Type: Report from Study
  Country: DE (occurrence: DE)
  Receive Date: 20130718
  Receipt Date: 20130718
  Transmission Date: 20140515
  Serious: Yes (Other)
  Sender: FDA-Public Use
  Company Number: DE-ROCHE-1250318

PATIENT
  Sex: 0

DRUGS (3)
  1. BEVACIZUMAB [Suspect]
     Indication: RETINAL DISORDER
     Route: 050
  2. RANIBIZUMAB [Suspect]
     Indication: RETINAL DISORDER
     Route: 050
  3. TRIAMCINOLONE [Suspect]
     Indication: RETINAL DISORDER
     Route: 050

REACTIONS (1)
  - Vitreous detachment [Unknown]
